FAERS Safety Report 20430206 (Version 1)
Quarter: 2022Q1

REPORT INFORMATION
  Report Type: Report from Study
  Country: US (occurrence: US)
  Receive Date: 20220204
  Receipt Date: 20220204
  Transmission Date: 20220423
  Serious: Yes (Hospitalization)
  Sender: FDA-Public Use
  Company Number: US-SERVIER-S20000824

PATIENT

DRUGS (13)
  1. ONCASPAR [Suspect]
     Active Substance: PEGASPARGASE
     Indication: B precursor type acute leukaemia
     Dosage: 3037.5 IU
     Route: 042
     Dates: start: 20191202, end: 20191202
  2. ONCASPAR [Suspect]
     Active Substance: PEGASPARGASE
     Dosage: 3027.5 IU, SINGLE
     Route: 065
     Dates: start: 20200203, end: 20200203
  3. CYTARABINE [Suspect]
     Active Substance: CYTARABINE
     Indication: Acute lymphocytic leukaemia
     Dosage: 70 MG
     Route: 065
     Dates: start: 20191129, end: 20191129
  4. CYTARABINE [Suspect]
     Active Substance: CYTARABINE
     Dosage: 1596 MG DURING COURSE 2 FREQUENCY UNKNOWN
     Route: 065
     Dates: start: 20200120, end: 20200220
  5. DAUNORUBICIN [Suspect]
     Active Substance: DAUNORUBICIN
     Indication: Acute lymphocytic leukaemia
     Dosage: 144 MG
     Route: 065
     Dates: start: 20191129, end: 20191220
  6. DEXAMETHASONE [Suspect]
     Active Substance: DEXAMETHASONE
     Indication: Acute lymphocytic leukaemia
     Dosage: 210 MG
     Route: 065
     Dates: start: 20191129, end: 20191219
  7. METHOTREXATE [Suspect]
     Active Substance: METHOTREXATE
     Indication: Acute lymphocytic leukaemia
     Dosage: 30 MG
     Route: 065
     Dates: start: 20191206, end: 20191227
  8. METHOTREXATE [Suspect]
     Active Substance: METHOTREXATE
     Dosage: 60 MG DURING COURSE 2  FREQUENCY UNKNOWN
     Route: 065
     Dates: start: 20200120, end: 20200210
  9. VINCRISTINE [Suspect]
     Active Substance: VINCRISTINE
     Indication: Acute lymphocytic leukaemia
     Dosage: 8 MG
     Route: 065
     Dates: start: 20191129, end: 20191220
  10. VINCRISTINE [Suspect]
     Active Substance: VINCRISTINE
     Dosage: 4 MG DURING COURSE 2  FREQUENCY UNKNOWN
     Route: 065
     Dates: start: 20200120, end: 20200210
  11. CYCLOPHOSPHAMIDE [Suspect]
     Active Substance: CYCLOPHOSPHAMIDE
     Indication: Acute lymphocytic leukaemia
     Dosage: 3040 MG DURING COURSE 2 FREQUENCY UNKNOWN
     Route: 065
     Dates: start: 20200120, end: 20200217
  12. MERCAPTOPURINE [Suspect]
     Active Substance: MERCAPTOPURINE
     Indication: Acute lymphocytic leukaemia
     Dosage: 2600 MG DURING COURSE 2 FREQUENCY UNKNOWN
     Route: 065
     Dates: start: 20200120, end: 20200223
  13. RITUXIMAB [Suspect]
     Active Substance: RITUXIMAB
     Indication: Acute lymphocytic leukaemia
     Dosage: 2210 MG DURING COURSE 2
     Route: 065
     Dates: start: 20200120, end: 20200217

REACTIONS (2)
  - Sinusitis fungal [Recovering/Resolving]
  - Febrile neutropenia [Recovered/Resolved]

NARRATIVE: CASE EVENT DATE: 20191222
